FAERS Safety Report 7545335-9 (Version None)
Quarter: 2011Q2

REPORT INFORMATION
  Report Type: 
  Country: None (occurrence: None)
  Receive Date: 20110614
  Receipt Date: 20110607
  Transmission Date: 20111010
  Serious: Yes (Life-Threatening, Hospitalization, Other)
  Sender: FDA-Public Use
  Company Number: FR-ELI_LILLY_AND_COMPANY-FR201106001604

PATIENT
  Sex: Female

DRUGS (4)
  1. ZYPREXA [Suspect]
     Dosage: 10 MG, QD
     Route: 048
     Dates: start: 20110101, end: 20110301
  2. DEPAKOTE [Concomitant]
     Dosage: 500 MG, BID
     Route: 048
     Dates: end: 20110301
  3. IMOVANE [Concomitant]
     Dosage: 7.5 MG, QD
     Route: 048
  4. LEXOMIL [Concomitant]
     Indication: ANXIETY
     Dosage: 0.5 DF, QD

REACTIONS (8)
  - COMA [None]
  - MUSCLE CONTRACTURE [None]
  - THROMBOCYTOPENIA [None]
  - NEPHROGENIC DIABETES INSIPIDUS [None]
  - INTENTIONAL OVERDOSE [None]
  - HYPERNATRAEMIA [None]
  - RHABDOMYOLYSIS [None]
  - RENAL FAILURE ACUTE [None]
